FAERS Safety Report 5815430-0 (Version None)
Quarter: 2008Q3

REPORT INFORMATION
  Report Type: 
  Country: None (occurrence: None)
  Receive Date: 20080718
  Receipt Date: 20080707
  Transmission Date: 20090109
  Serious: Yes (Other)
  Sender: FDA-Public Use
  Company Number: JP-PFIZER INC-2008056745

PATIENT
  Age: 71 Year
  Sex: Male

DRUGS (8)
  1. CABASER [Suspect]
     Indication: PARKINSON'S DISEASE
     Route: 048
     Dates: start: 20080702, end: 20080704
  2. CARBIDOPA AND LEVODOPA [Concomitant]
     Route: 048
  3. NORVASC [Concomitant]
     Route: 048
  4. BLOPRESS [Concomitant]
     Route: 048
  5. CONIEL [Concomitant]
     Route: 048
  6. MAGNESIUM OXIDE [Concomitant]
     Route: 048
  7. ALLOPURINOL [Concomitant]
     Route: 048
  8. ASPIRIN [Concomitant]
     Route: 048

REACTIONS (2)
  - BLOOD PRESSURE DECREASED [None]
  - BRADYCARDIA [None]
